FAERS Safety Report 6321323-5 (Version None)
Quarter: 2009Q3

REPORT INFORMATION
  Report Type: 
  Country: None (occurrence: None)
  Receive Date: 20090822
  Receipt Date: 20090113
  Transmission Date: 20100115
  Serious: No
  Sender: FDA-Public Use
  Company Number: US-ABBOTT-09P-163-0497744-00

PATIENT
  Sex: Male
  Weight: 71.278 kg

DRUGS (8)
  1. NIASPAN [Suspect]
     Indication: BLOOD HOMOCYSTEINE INCREASED
     Dates: start: 20081101, end: 20081201
  2. NIASPAN [Suspect]
     Dates: start: 20081201
  3. ASPIRIN [Concomitant]
     Indication: DRUG USE FOR UNKNOWN INDICATION
  4. SYNTHROID [Concomitant]
     Indication: DRUG USE FOR UNKNOWN INDICATION
  5. CEREFOLIN [Concomitant]
     Indication: VITAMIN SUPPLEMENTATION
  6. LIPITOR [Concomitant]
     Indication: DRUG USE FOR UNKNOWN INDICATION
  7. LOPRESSOR [Concomitant]
     Indication: DRUG USE FOR UNKNOWN INDICATION
  8. CLONAZEPAM [Concomitant]
     Indication: DRUG USE FOR UNKNOWN INDICATION

REACTIONS (1)
  - RASH [None]
